FAERS Safety Report 18291476 (Version 1)
Quarter: 2020Q3

REPORT INFORMATION
  Report Type: Spontaneous
  Country: DE (occurrence: DE)
  Receive Date: 20200922
  Receipt Date: 20200922
  Transmission Date: 20201103
  Serious: Yes (Other)
  Sender: FDA-Public Use
  Company Number: DE-BEH-2020122557

PATIENT
  Age: 62 Year
  Sex: Female

DRUGS (4)
  1. FENISTIL [Concomitant]
     Active Substance: DIMETHINDENE
  2. RANITIC [Concomitant]
     Active Substance: RANITIDINE HYDROCHLORIDE
  3. PRIVIGEN [Suspect]
     Active Substance: HUMAN IMMUNOGLOBULIN G
     Indication: IMMUNOSUPPRESSION
     Dosage: UNK
     Route: 042
     Dates: start: 2019
  4. PREDNISOLON [PREDNISOLONE] [Concomitant]
     Active Substance: PREDNISOLONE

REACTIONS (3)
  - No adverse event [Unknown]
  - Administration related reaction [Recovered/Resolved]
  - Product use in unapproved indication [Unknown]

NARRATIVE: CASE EVENT DATE: 20190528
